FAERS Safety Report 26077090 (Version 1)
Quarter: 2025Q4

REPORT INFORMATION
  Report Type: Spontaneous
  Country: EU (occurrence: EU)
  Receive Date: 20251121
  Receipt Date: 20251121
  Transmission Date: 20260118
  Serious: Yes (Other)
  Sender: BRECKENRIDGE PHARMACEUTICAL, INC.
  Company Number: EU-Breckenridge Pharmaceutical, Inc.-2189094

PATIENT
  Sex: Female

DRUGS (7)
  1. DULOXETINE [Suspect]
     Active Substance: DULOXETINE
     Indication: Product used for unknown indication
  2. SUMATRIPTAN SUCCINATE [Suspect]
     Active Substance: SUMATRIPTAN SUCCINATE
  3. RABEPRAZOLE [Suspect]
     Active Substance: RABEPRAZOLE
  4. DOMPERIDONE [Suspect]
     Active Substance: DOMPERIDONE
  5. PIZOTYLINE [Suspect]
     Active Substance: PIZOTYLINE
  6. QUININE [Suspect]
     Active Substance: QUININE
  7. ACETAMINOPHEN\CODEINE PHOSPHATE [Suspect]
     Active Substance: ACETAMINOPHEN\CODEINE PHOSPHATE

REACTIONS (8)
  - Blindness [Recovering/Resolving]
  - Intentional overdose [Unknown]
  - Retinal disorder [Unknown]
  - Visual pathway disorder [Unknown]
  - Retinogram abnormal [Unknown]
  - Macular degeneration [Recovered/Resolved]
  - Retinal vascular disorder [Unknown]
  - Macular oedema [Unknown]
